FAERS Safety Report 4511029-7 (Version None)
Quarter: 2004Q4

REPORT INFORMATION
  Report Type: 
  Country: None (occurrence: None)
  Receive Date: 20041018
  Receipt Date: 20040714
  Transmission Date: 20050328
  Serious: No
  Sender: FDA-Public Use
  Company Number: 207842

PATIENT
  Age: 18 Year
  Sex: Female

DRUGS (1)
  1. XOLAIR [Suspect]
     Indication: ASTHMA
     Dosage: 300 GM, Q2W, SUBCUTANEOUS
     Route: 058
     Dates: start: 20040601

REACTIONS (1)
  - INJECTION SITE REACTION [None]
